APPROVED DRUG PRODUCT: TENOFOVIR ALAFENAMIDE FUMARATE
Active Ingredient: TENOFOVIR ALAFENAMIDE FUMARATE
Strength: EQ 25MG BASE
Dosage Form/Route: TABLET;ORAL
Application: A213867 | Product #001
Applicant: APOTEX INC
Approved: Mar 21, 2024 | RLD: No | RS: No | Type: DISCN